FAERS Safety Report 17367119 (Version 1)
Quarter: 2020Q1

REPORT INFORMATION
  Report Type: Spontaneous
  Country: IT (occurrence: IT)
  Receive Date: 20200204
  Receipt Date: 20200204
  Transmission Date: 20200409
  Serious: Yes (Other)
  Sender: FDA-Public Use
  Company Number: IT-PFIZER INC-2020047009

PATIENT
  Age: 56 Year
  Sex: Female

DRUGS (3)
  1. ALPRAZOLAM. [Suspect]
     Active Substance: ALPRAZOLAM
     Dosage: 20 ML, SINGLE
     Route: 048
     Dates: start: 20200111, end: 20200111
  2. CIPRALEX [Suspect]
     Active Substance: ESCITALOPRAM OXALATE
     Dosage: 30 ML, SINGLE
     Route: 048
     Dates: start: 20200111, end: 20200111
  3. LORMETAZEPAM [Suspect]
     Active Substance: LORMETAZEPAM
     Dosage: 20 ML, SINGLE
     Route: 048
     Dates: start: 20200111, end: 20200111

REACTIONS (2)
  - Drug abuse [Recovering/Resolving]
  - Areflexia [Recovering/Resolving]

NARRATIVE: CASE EVENT DATE: 20200111
